FAERS Safety Report 8972869 (Version 1)
Quarter: 2012Q4

REPORT INFORMATION
  Report Type: Spontaneous
  Country: US (occurrence: None)
  Receive Date: 20121210
  Receipt Date: 20121210
  Transmission Date: 20130627
  Serious: Yes (Other)
  Sender: FDA-Public Use
  Company Number: 2012-8078

PATIENT
  Age: 45 Year
  Sex: Female

DRUGS (4)
  1. SOMATULINE DEPOT [Suspect]
     Dosage: 120 mg (120 mg, 1 in 8 wk), Subcutaneous
     Route: 058
     Dates: start: 2012
  2. SOMATULINE DEPOT [Suspect]
     Dosage: 120 mg (120 mg, 1 in 4 wk)
     Dates: start: 20110304, end: 2012
  3. NOVOLOG (INSULIN ASPART) (NO PREF. NAME) [Concomitant]
  4. LANTUS (INSULIN GLARGINE) [Concomitant]

REACTIONS (4)
  - Glaucoma [None]
  - Sinus headache [None]
  - Condition aggravated [None]
  - Cataract [None]
